FAERS Safety Report 5049846-X (Version None)
Quarter: 2006Q3

REPORT INFORMATION
  Report Type: 
  Country: None (occurrence: None)
  Receive Date: 20060706
  Receipt Date: 20060623
  Transmission Date: 20061208
  Serious: Yes (Hospitalization)
  Sender: FDA-Public Use
  Company Number: 226648

PATIENT
  Age: 48 Year
  Sex: Male

DRUGS (3)
  1. ERLOTINIB [Suspect]
     Indication: TONSIL CANCER
     Dosage: 100 MG, QD; ORAL
     Route: 048
     Dates: start: 20060603
  2. AVASTIN [Suspect]
     Indication: TONSIL CANCER
     Dosage: 10 MG/KG, Q2W; INTRAVENOUS
     Route: 042
     Dates: start: 20060517
  3. RADIATION THERAPY [Concomitant]

REACTIONS (8)
  - BLOOD ALBUMIN DECREASED [None]
  - BLOOD CHLORIDE DECREASED [None]
  - BLOOD SODIUM DECREASED [None]
  - MALAISE [None]
  - NEUTROPHIL COUNT INCREASED [None]
  - PYREXIA [None]
  - URINE FLOW DECREASED [None]
  - URINE KETONE BODY PRESENT [None]
